FAERS Safety Report 21220943 (Version 1)
Quarter: 2022Q3

REPORT INFORMATION
  Report Type: Spontaneous
  Country: FR (occurrence: FR)
  Receive Date: 20220817
  Receipt Date: 20220817
  Transmission Date: 20221026
  Serious: Yes (Other)
  Sender: FDA-Public Use
  Company Number: None

PATIENT
  Age: 0 Day
  Sex: Female
  Weight: 2.54 kg

DRUGS (11)
  1. EPIRUBICIN [Suspect]
     Active Substance: EPIRUBICIN
     Indication: Breast cancer
     Dosage: UNIT DOSE: 152 MG, FREQUENCY TIME-1 DAY, DURATION-1 DAYS
     Dates: start: 20210824, end: 20210824
  2. EPIRUBICIN [Suspect]
     Active Substance: EPIRUBICIN
     Dosage: UNIT DOSE: 152 MG, FREQUENCY TIME-1 DAY, DURATION-1 DAYS
     Dates: start: 20210622, end: 20210622
  3. EPIRUBICIN [Suspect]
     Active Substance: EPIRUBICIN
     Dosage: UNIT DOSE: 152 MG, FREQUENCY TIME-1 DAY, DURATION-1 DAYS
     Dates: start: 20210601, end: 20210601
  4. EPIRUBICIN [Suspect]
     Active Substance: EPIRUBICIN
     Dosage: UNIT DOSE: 152 MG, FREQUENCY TIME-1 DAY, DURATION-1 DAYS
     Dates: start: 20210713, end: 20210713
  5. EPIRUBICIN [Suspect]
     Active Substance: EPIRUBICIN
     Dosage: UNIT DOSE: 152 MG, FREQUENCY TIME-1 DAY, DURATION-1 DAYS
     Dates: start: 20210803, end: 20210803
  6. CYCLOPHOSPHAMIDE [Suspect]
     Active Substance: CYCLOPHOSPHAMIDE
     Indication: Breast cancer
     Dosage: UNIT DOSE: 760 MG, FREQUENCY TIME-1 DAY, DURATION-1 DAYS
     Dates: start: 20210601, end: 20210601
  7. CYCLOPHOSPHAMIDE [Suspect]
     Active Substance: CYCLOPHOSPHAMIDE
     Dosage: UNIT DOSE: 760 MG, FREQUENCY TIME-1 DAY, DURATION-1 DAYS
     Dates: start: 20210803, end: 20210803
  8. CYCLOPHOSPHAMIDE [Suspect]
     Active Substance: CYCLOPHOSPHAMIDE
     Dosage: UNIT DOSE: 760 MG, FREQUENCY TIME-1 DAY, DURATION-1 DAYS
     Dates: start: 20210713, end: 20210713
  9. CYCLOPHOSPHAMIDE [Suspect]
     Active Substance: CYCLOPHOSPHAMIDE
     Dosage: UNIT DOSE: 760 MG, FREQUENCY TIME-1 DAY, DURATION-1 DAYS
     Dates: start: 20210824, end: 20210824
  10. CYCLOPHOSPHAMIDE [Suspect]
     Active Substance: CYCLOPHOSPHAMIDE
     Dosage: UNIT DOSE: 760 MG, FREQUENCY TIME-1 DAY, DURATION-1 DAYS
     Dates: start: 20210622, end: 20210622
  11. PROPRANOLOL HYDROCHLORIDE [Suspect]
     Active Substance: PROPRANOLOL HYDROCHLORIDE
     Indication: Myocarditis
     Dosage: FORM STRENGTH: 40 MG, UNIT DOSE: 80 MG, FREQUENCY TIME-1 DAY, DURATION-4 DAYS
     Dates: start: 20211004, end: 20211008

REACTIONS (1)
  - Bradycardia foetal [Recovered/Resolved]

NARRATIVE: CASE EVENT DATE: 20211008
